FAERS Safety Report 24202797 (Version 1)
Quarter: 2024Q3

REPORT INFORMATION
  Report Type: Report from Study
  Country: GB (occurrence: GB)
  Receive Date: 20240813
  Receipt Date: 20240813
  Transmission Date: 20241016
  Serious: Yes (Other)
  Sender: BAXTER
  Company Number: GB-BAXTER-2024BAX022699

PATIENT
  Age: 65 Year
  Sex: Male

DRUGS (16)
  1. CERNEVIT [Suspect]
     Active Substance: VITAMINS
     Indication: Parenteral nutrition
     Dosage: 3000 MLS, DAILY (CONCENTRATION: 10.2 MG)
     Route: 065
  2. DEXTROSE [Suspect]
     Active Substance: DEXTROSE\DEXTROSE MONOHYDRATE
     Indication: Parenteral nutrition
     Dosage: 3000 MLS, DAILY (CONCENTRATION: 50 %)
     Route: 042
  3. WATER FOR INJECTION [Suspect]
     Active Substance: WATER
     Indication: Parenteral nutrition
     Dosage: 3000 MLS, DAILY
     Route: 042
  4. WATER FOR INJECTION [Suspect]
     Active Substance: WATER
     Dosage: 3000 MLS, DAILY
     Route: 042
  5. ACYCLOVIR [Suspect]
     Active Substance: ACYCLOVIR
     Indication: Herpes zoster
     Dosage: 400 MGS, TWICE A DAY
     Route: 065
     Dates: start: 20240730
  6. AMINO ACIDS, SOURCE UNSPECIFIED [Suspect]
     Active Substance: AMINO ACIDS, SOURCE UNSPECIFIED
     Indication: Parenteral nutrition
     Dosage: 3000 MLS, DAILY
     Route: 065
  7. MAGNESIUM SULFATE [Suspect]
     Active Substance: MAGNESIUM SULFATE\MAGNESIUM SULFATE HEPTAHYDRATE
     Indication: Parenteral nutrition
     Dosage: 3000 MLS, DAILY (CONCENTRATION: 50%)
     Route: 065
  8. SODIUM CHLORIDE [Suspect]
     Active Substance: SODIUM CHLORIDE
     Indication: Parenteral nutrition
     Dosage: 3000 MLS, DAILY (CONCENTRATION: 30 %)
     Route: 065
  9. SODIUM GLYCEROPHOSPHATE [Suspect]
     Active Substance: SODIUM GLYCEROPHOSPHATE
     Indication: Parenteral nutrition
     Dosage: 3000 MLS, DAILY (CONCENTRATION: 21.6 %)
     Route: 065
  10. POTASSIUM CHLORIDE [Suspect]
     Active Substance: POTASSIUM CHLORIDE
     Indication: Parenteral nutrition
     Dosage: 3000 MLS, DAILY (CONCENTRATION: 15%)
     Route: 065
  11. POTASSIUM ACETATE [Suspect]
     Active Substance: POTASSIUM ACETATE
     Indication: Parenteral nutrition
     Dosage: 3000 MLS, DAILY (CONCENTRATION: 49 %)
     Route: 065
  12. CALCIUM CHLORIDE [Suspect]
     Active Substance: CALCIUM CHLORIDE
     Indication: Parenteral nutrition
     Dosage: 3000 MLS, DAILY (CONCENTRATION: 1 MICROMOLE PER MILLILITRE)
     Route: 065
  13. SODIUM SELENITE [Suspect]
     Active Substance: SODIUM SELENITE
     Indication: Parenteral nutrition
     Dosage: 3000 MLS, DAILY (CONCENTRATION: 0.2 MICROMOLE PER MILLILITRE)
     Route: 065
  14. ZINC SULFATE [Suspect]
     Active Substance: ZINC SULFATE
     Indication: Parenteral nutrition
     Dosage: 3000 MLS, DAILY (CONCENTRATION: 50 MICROMOLE PER MILLILITRE)
     Route: 065
  15. CUPRIC SULFATE ANHYDROUS [Suspect]
     Active Substance: CUPRIC SULFATE ANHYDROUS
     Indication: Parenteral nutrition
     Dosage: 3000 MLS, DAILY (CONCENTRATION: 4 MICROMOLE PER MILLILITRE)
     Route: 065
  16. UNSPECIFIED INGREDIENT [Suspect]
     Active Substance: UNSPECIFIED INGREDIENT
     Route: 065

REACTIONS (3)
  - Peripheral swelling [Not Recovered/Not Resolved]
  - Oedema peripheral [Not Recovered/Not Resolved]
  - Face oedema [Not Recovered/Not Resolved]

NARRATIVE: CASE EVENT DATE: 20240731
